FAERS Safety Report 25150495 (Version 1)
Quarter: 2025Q2

REPORT INFORMATION
  Report Type: Report from Study
  Country: US (occurrence: US)
  Receive Date: 20250402
  Receipt Date: 20250402
  Transmission Date: 20250717
  Serious: Yes (Other)
  Sender: BAYER
  Company Number: US-BAYER-2025A022865

PATIENT
  Age: 58 Year
  Sex: Male

DRUGS (5)
  1. STIVARGA [Suspect]
     Active Substance: REGORAFENIB MONOHYDRATE
     Indication: Appendix cancer
     Dosage: 120 MG, QD(FOR 21 DAYS THEN 7 DAYS OFF)
     Route: 048
  2. STIVARGA [Suspect]
     Active Substance: REGORAFENIB MONOHYDRATE
     Indication: Appendix cancer
     Dosage: 160 MG, QD
     Route: 048
  3. STIVARGA [Suspect]
     Active Substance: REGORAFENIB MONOHYDRATE
     Indication: Appendix cancer
     Dosage: 120 MG, QD
     Route: 048
  4. STIVARGA [Suspect]
     Active Substance: REGORAFENIB MONOHYDRATE
     Indication: Appendix cancer
     Dosage: 80 MG, QD
     Route: 048
  5. STIVARGA [Suspect]
     Active Substance: REGORAFENIB MONOHYDRATE
     Indication: Appendix cancer
     Dosage: 80 MG, QD
     Route: 048

REACTIONS (13)
  - Gait inability [Recovered/Resolved]
  - Impaired driving ability [Recovered/Resolved]
  - Oral mucosal blistering [Not Recovered/Not Resolved]
  - Paraesthesia [Not Recovered/Not Resolved]
  - Abdominal pain upper [Not Recovered/Not Resolved]
  - Stomatitis [Recovered/Resolved]
  - Pain in extremity [Recovered/Resolved]
  - Pain [Recovered/Resolved]
  - Peripheral swelling [Recovered/Resolved]
  - Erythema [Recovered/Resolved]
  - Skin erosion [Recovered/Resolved]
  - Blister [Recovered/Resolved]
  - Oral mucosal roughening [Recovered/Resolved]
